FAERS Safety Report 8161219-X (Version None)
Quarter: 2012Q1

REPORT INFORMATION
  Report Type: 
  Country: None (occurrence: None)
  Receive Date: 20120103
  Receipt Date: 20111006
  Transmission Date: 20120608
  Serious: No
  Sender: FDA-Public Use
  Company Number: AE-2011-002099

PATIENT
  Age: 42 Year
  Sex: Female

DRUGS (4)
  1. LITHIUM CARBONATE [Concomitant]
  2. INCIVEK [Suspect]
     Dosage: 2250 MG (750 MG, 3 IN 1 D), ORAL
     Route: 048
     Dates: start: 20110930
  3. RIBAVIRIN [Concomitant]
  4. PEGINTERFERON (PEGINTERFERON ALFA-2A) [Concomitant]

REACTIONS (4)
  - ASTHENIA [None]
  - FATIGUE [None]
  - NAUSEA [None]
  - RASH [None]
